FAERS Safety Report 8383417-2 (Version None)
Quarter: 2012Q2

REPORT INFORMATION
  Report Type: 
  Country: None (occurrence: None)
  Receive Date: 20120522
  Receipt Date: 20120328
  Transmission Date: 20120825
  Serious: Yes (Other)
  Sender: FDA-Public Use
  Company Number: 2012P1010650

PATIENT
  Age: 25 Year
  Sex: Male
  Weight: 99.7913 kg

DRUGS (3)
  1. LAMOTRIGINE [Suspect]
     Indication: BIPOLAR DISORDER
     Dosage: 300 MG; QD, 300 MG; QD
     Dates: start: 20100101, end: 20100201
  2. LAMOTRIGINE [Suspect]
     Indication: BIPOLAR DISORDER
     Dosage: 300 MG; QD, 300 MG; QD
     Dates: start: 20110807, end: 20110817
  3. SEROQUEL [Concomitant]

REACTIONS (4)
  - PRODUCT SUBSTITUTION ISSUE [None]
  - DRUG INEFFECTIVE [None]
  - MANIA [None]
  - VICTIM OF CRIME [None]
